FAERS Safety Report 10158395 (Version 1)
Quarter: 2014Q2

REPORT INFORMATION
  Report Type: Spontaneous
  Country: CA (occurrence: CA)
  Receive Date: 20140507
  Receipt Date: 20140507
  Transmission Date: 20141212
  Serious: Yes (Other)
  Sender: FDA-Public Use
  Company Number: PHHY2014CA053664

PATIENT
  Sex: Female

DRUGS (1)
  1. LDK378 [Suspect]
     Dosage: UNK UKN, UNK

REACTIONS (1)
  - Disease progression [Not Recovered/Not Resolved]
